FAERS Safety Report 8301265-6 (Version None)
Quarter: 2012Q2

REPORT INFORMATION
  Report Type: 
  Country: None (occurrence: None)
  Receive Date: 20120420
  Receipt Date: 20120411
  Transmission Date: 20120825
  Serious: Yes (Hospitalization)
  Sender: FDA-Public Use
  Company Number: MY-B.I. PHARMACEUTICALS,INC./RIDGEFIELD-2012-CS-00428MD

PATIENT
  Sex: Female

DRUGS (4)
  1. LOVASTATIN [Concomitant]
     Dosage: 20 MG
  2. FUROSEMIDE [Concomitant]
  3. PRADAXA [Suspect]
     Indication: CEREBROVASCULAR ACCIDENT PROPHYLAXIS
     Dosage: 300 MG
     Route: 048
     Dates: start: 20120319, end: 20120326
  4. OMEPRAZOLE [Concomitant]

REACTIONS (5)
  - HYPERSENSITIVITY [None]
  - PERIORBITAL OEDEMA [None]
  - OEDEMA PERIPHERAL [None]
  - ANGIOEDEMA [None]
  - EYE SWELLING [None]
